FAERS Safety Report 9411344 (Version 1)
Quarter: 2013Q3

REPORT INFORMATION
  Report Type: Spontaneous
  Country: US (occurrence: US)
  Receive Date: 20130722
  Receipt Date: 20130722
  Transmission Date: 20140515
  Serious: No
  Sender: FDA-Public Use
  Company Number: US-BIOGENIDEC-2013BI065694

PATIENT
  Age: 47 Year
  Sex: Female

DRUGS (8)
  1. TYSABRI [Suspect]
     Indication: MULTIPLE SCLEROSIS
     Route: 042
     Dates: start: 20070628, end: 20080104
  2. TYSABRI [Suspect]
     Indication: MULTIPLE SCLEROSIS
     Route: 042
     Dates: start: 20080418, end: 20090109
  3. TYSABRI [Suspect]
     Indication: MULTIPLE SCLEROSIS
     Route: 042
     Dates: start: 20090521, end: 20101118
  4. TYSABRI [Suspect]
     Indication: MULTIPLE SCLEROSIS
     Route: 042
     Dates: start: 20110907
  5. MORPHINE [Concomitant]
     Indication: INTERVERTEBRAL DISC DEGENERATION
  6. MS CONTIN [Concomitant]
     Indication: INTERVERTEBRAL DISC DEGENERATION
  7. MS CONTIN [Concomitant]
     Indication: INTERVERTEBRAL DISC DEGENERATION
  8. FLEXERIL [Concomitant]
     Indication: MUSCLE SPASMS

REACTIONS (5)
  - Procedural vomiting [Recovered/Resolved]
  - Postoperative fever [Recovered/Resolved]
  - Confusional state [Recovered/Resolved]
  - Pyrexia [Recovered/Resolved]
  - Tooth infection [Recovered/Resolved]
